FAERS Safety Report 18677772 (Version 1)
Quarter: 2020Q4

REPORT INFORMATION
  Report Type: Spontaneous
  Country: PH (occurrence: PH)
  Receive Date: 20201229
  Receipt Date: 20201229
  Transmission Date: 20210114
  Serious: Yes (Hospitalization)
  Sender: FDA-Public Use
  Company Number: PHBS1996PH06149

PATIENT
  Age: 18 Year
  Sex: Male

DRUGS (4)
  1. CLOFAZIMINE [Suspect]
     Active Substance: CLOFAZIMINE
     Indication: LEPROSY
     Dosage: 300 MG, QMO
     Route: 048
  2. RIFAMPICIN [Suspect]
     Active Substance: RIFAMPIN
     Indication: LEPROSY
     Dosage: 600 MG, QMO
     Route: 048
  3. CLOFAZIMINE [Suspect]
     Active Substance: CLOFAZIMINE
     Dosage: 50 MG, QD
     Route: 048
  4. DAPSONE. [Suspect]
     Active Substance: DAPSONE
     Indication: LEPROSY
     Dosage: 100 MG
     Route: 048

REACTIONS (5)
  - Drug reaction with eosinophilia and systemic symptoms [Recovered/Resolved]
  - Jaundice [Unknown]
  - Pyrexia [Unknown]
  - Lymphocytosis [Unknown]
  - Rash [Unknown]

NARRATIVE: CASE EVENT DATE: 1995
